FAERS Safety Report 24781937 (Version 1)
Quarter: 2024Q4

REPORT INFORMATION
  Report Type: Spontaneous
  Country: PL (occurrence: PL)
  Receive Date: 20241227
  Receipt Date: 20241227
  Transmission Date: 20250114
  Serious: Yes (Other)
  Sender: SANOFI AVENTIS
  Company Number: PL-SA-2024SA381258

PATIENT
  Age: 69 Year
  Sex: Female
  Weight: 65 kg

DRUGS (1)
  1. AUBAGIO [Suspect]
     Active Substance: TERIFLUNOMIDE
     Dosage: 14 MG, QD
     Route: 048
     Dates: start: 20210323

REACTIONS (1)
  - Gastrointestinal stromal tumour [Unknown]

NARRATIVE: CASE EVENT DATE: 20241130
